FAERS Safety Report 6032482-6 (Version None)
Quarter: 2008Q4

REPORT INFORMATION
  Report Type: 
  Country: None (occurrence: None)
  Receive Date: 20081224
  Receipt Date: 20080924
  Transmission Date: 20090506
  Serious: No
  Sender: FDA-Public Use
  Company Number: 2008PV036775

PATIENT
  Age: 69 Year
  Sex: Male

DRUGS (6)
  1. SYMLIN [Suspect]
     Indication: TYPE 2 DIABETES MELLITUS
     Dosage: 120 MCG;TID;SC
     Route: 058
     Dates: start: 20080414
  2. NOVOLOG [Concomitant]
  3. NOVOLIN [Concomitant]
  4. LANTUS [Concomitant]
  5. ORAL DIABETIC AGENT [Concomitant]
  6. FLUOXETINE HCL [Concomitant]

REACTIONS (1)
  - HALLUCINATION, VISUAL [None]
